FAERS Safety Report 23974370 (Version 1)
Quarter: 2024Q2

REPORT INFORMATION
  Report Type: Spontaneous
  Country: US (occurrence: US)
  Receive Date: 20240614
  Receipt Date: 20240614
  Transmission Date: 20240715
  Serious: No
  Sender: FDA-Public Use
  Company Number: US-SUN PHARMACEUTICAL INDUSTRIES LTD-2024R1-429333

PATIENT
  Sex: Female

DRUGS (2)
  1. LIOTHYRONINE [Suspect]
     Active Substance: LIOTHYRONINE
     Indication: Hypothyroidism
     Dosage: UNKNOWN
     Route: 065
  2. LIOTHYRONINE [Suspect]
     Active Substance: LIOTHYRONINE
     Indication: Blood cholesterol increased

REACTIONS (4)
  - Dizziness [Recovered/Resolved]
  - Gait disturbance [Unknown]
  - Recalled product administered [Unknown]
  - Therapy cessation [Unknown]
